FAERS Safety Report 5957081-3 (Version None)
Quarter: 2008Q4

REPORT INFORMATION
  Report Type: 
  Country: None (occurrence: None)
  Receive Date: 20081118
  Receipt Date: 20081106
  Transmission Date: 20090506
  Serious: Yes (Other)
  Sender: FDA-Public Use
  Company Number: SE-PFIZER INC-2008072247

PATIENT
  Sex: Female

DRUGS (8)
  1. PREDNISOLONE [Suspect]
     Indication: POLYMYALGIA RHEUMATICA
     Route: 048
     Dates: start: 20070801
  2. PREDNISOLONE [Suspect]
     Route: 048
  3. PREDNISOLONE [Suspect]
     Route: 048
     Dates: start: 20080731, end: 20080815
  4. PREDNISOLONE [Suspect]
     Route: 048
     Dates: start: 20080816, end: 20080915
  5. ALENDRONATE SODIUM [Concomitant]
  6. ZOLPIDEM TARTRATE [Concomitant]
  7. IBUPROFEN TABLETS [Concomitant]
  8. ALL OTHER THERAPEUTIC PRODUCTS [Concomitant]

REACTIONS (15)
  - ALOPECIA [None]
  - BLOOD GLUCOSE INCREASED [None]
  - CUSHINGOID [None]
  - DRY MOUTH [None]
  - DYSGEUSIA [None]
  - ECCHYMOSIS [None]
  - FATIGUE [None]
  - HYPOAESTHESIA [None]
  - INSOMNIA [None]
  - PAIN [None]
  - PALPITATIONS [None]
  - SKIN ATROPHY [None]
  - SKIN FRAGILITY [None]
  - TREMOR [None]
  - TRICHORRHEXIS [None]
